FAERS Safety Report 8382623-0 (Version None)
Quarter: 2012Q2

REPORT INFORMATION
  Report Type: 
  Country: None (occurrence: None)
  Receive Date: 20120524
  Receipt Date: 20120514
  Transmission Date: 20120825
  Serious: Yes (Death)
  Sender: FDA-Public Use
  Company Number: JP-JNJFOC-20120513986

PATIENT
  Age: 52 Year
  Sex: Male

DRUGS (9)
  1. INVEGA [Suspect]
     Indication: PRODUCT USED FOR UNKNOWN INDICATION
     Route: 048
     Dates: start: 20120502
  2. HIRNAMIN (LEVOPROMAZINE MALEATE) [Concomitant]
     Route: 048
  3. FERROUS CITRATE [Concomitant]
     Route: 048
  4. ROZEREM [Concomitant]
     Route: 048
  5. LIPITOR [Concomitant]
     Route: 048
  6. SILECE [Concomitant]
     Route: 048
  7. HALCION [Concomitant]
     Route: 048
  8. RISPERDAL CONSTA [Suspect]
     Indication: PRODUCT USED FOR UNKNOWN INDICATION
     Route: 030
     Dates: start: 20111128, end: 20120502
  9. CLONAZEPAM [Concomitant]
     Route: 048

REACTIONS (2)
  - DEATH [None]
  - INAPPROPRIATE SCHEDULE OF DRUG ADMINISTRATION [None]
